FAERS Safety Report 9541788 (Version 1)
Quarter: 2013Q3

REPORT INFORMATION
  Report Type: Spontaneous
  Country: FI (occurrence: FI)
  Receive Date: 20130923
  Receipt Date: 20130923
  Transmission Date: 20140515
  Serious: No
  Sender: FDA-Public Use
  Company Number: FI-JNJFOC-20130908537

PATIENT
  Age: 82 Year
  Sex: Female

DRUGS (1)
  1. DUROGESIC [Suspect]
     Indication: PAIN

REACTIONS (8)
  - Pain [Unknown]
  - Product quality issue [Unknown]
  - Product quality issue [Unknown]
  - Poor quality drug administered [Unknown]
  - Wrong technique in drug usage process [Unknown]
  - Product quality issue [Unknown]
  - Product quality issue [Unknown]
  - Medication error [Unknown]
